FAERS Safety Report 7789681-2 (Version None)
Quarter: 2011Q3

REPORT INFORMATION
  Report Type: 
  Country: None (occurrence: None)
  Receive Date: 20110930
  Receipt Date: 20110926
  Transmission Date: 20111222
  Serious: Yes (Death)
  Sender: FDA-Public Use
  Company Number: US-CELGENEUS-163-21880-11091190

PATIENT
  Age: 72 Year
  Sex: Male
  Weight: 74 kg

DRUGS (15)
  1. MELPHALAN HYDROCHLORIDE [Suspect]
     Dosage: 5 MILLIGRAM/SQ. METER
     Route: 065
     Dates: start: 20091029
  2. CELEXA [Concomitant]
     Dosage: 40 MILLIGRAM
     Route: 065
  3. LOPRESSOR [Concomitant]
     Dosage: 12.5 MILLIGRAM
     Route: 065
  4. FERROUS SULFATE TAB [Concomitant]
     Dosage: 325 MILLIGRAM
     Route: 065
  5. REVLIMID [Suspect]
     Dosage: 10 MILLIGRAM
     Route: 048
     Dates: start: 20091029, end: 20091118
  6. PREDNISONE [Suspect]
     Dosage: 100 MILLIGRAM
     Route: 048
     Dates: start: 20090416
  7. REVLIMID [Suspect]
     Dosage: 10 MILLIGRAM
     Route: 048
     Dates: start: 20090416
  8. MELPHALAN HYDROCHLORIDE [Suspect]
     Dosage: 5 MILLIGRAM/SQ. METER
     Route: 048
     Dates: start: 20090416
  9. METHADONE HCL [Concomitant]
     Dosage: 20 MILLIGRAM
     Route: 065
  10. ASPIRIN [Concomitant]
     Dosage: 81 MILLIGRAM
     Route: 048
  11. POTASSIUM CHLORIDE [Concomitant]
     Dosage: 40 MILLIEQUIVALENTS
     Route: 065
  12. PREDNISONE [Suspect]
     Dosage: 100 MILLIGRAM
     Route: 048
     Dates: start: 20091029
  13. ASPIRIN [Concomitant]
     Dosage: 325 MILLIGRAM
     Route: 048
     Dates: start: 20090416
  14. ZOCOR [Concomitant]
     Dosage: 10 MILLIGRAM
     Route: 065
  15. DILAUDID [Concomitant]
     Dosage: 2 MILLIGRAM
     Route: 065

REACTIONS (1)
  - LUNG SQUAMOUS CELL CARCINOMA STAGE UNSPECIFIED [None]
